FAERS Safety Report 5083120-0 (Version None)
Quarter: 2006Q3

REPORT INFORMATION
  Report Type: 
  Country: None (occurrence: None)
  Receive Date: 20060720
  Receipt Date: 20060510
  Transmission Date: 20061208
  Serious: Yes (Hospitalization, Other)
  Sender: FDA-Public Use
  Company Number: 2006049142

PATIENT
  Age: 68 Year
  Sex: Male
  Weight: 102.5129 kg

DRUGS (10)
  1. CELEBREX [Suspect]
     Indication: ARTHRITIS
     Dosage: 200 MG (200 MG, 1 IN 1 D), ORAL
     Route: 048
     Dates: end: 20060316
  2. COZAAR [Concomitant]
  3. ALL OTHER THERAPEUTIC PRODUCTS ( ALL OTHER THERAPEUTIC PRODUCTS) [Concomitant]
  4. LIPITOR [Concomitant]
  5. PRILOSEC [Concomitant]
  6. ASPIRIN [Concomitant]
  7. TIAZAC [Concomitant]
  8. LEVITRA [Concomitant]
  9. CIALIS [Concomitant]
  10. VIAGRA [Concomitant]

REACTIONS (2)
  - PULMONARY EMBOLISM [None]
  - THROMBOSIS [None]
